FAERS Safety Report 6404227-9 (Version None)
Quarter: 2009Q4

REPORT INFORMATION
  Report Type: 
  Country: None (occurrence: None)
  Receive Date: 20091016
  Receipt Date: 20091014
  Transmission Date: 20100525
  Serious: Yes (Death)
  Sender: FDA-Public Use
  Company Number: BE-JNJFOC-20090506410

PATIENT
  Sex: Male

DRUGS (9)
  1. RISPERDAL CONSTA [Suspect]
     Route: 030
  2. RISPERDAL CONSTA [Suspect]
     Indication: PSYCHOTIC DISORDER
     Route: 030
  3. AKINETON [Concomitant]
     Route: 065
  4. METADONE [Concomitant]
     Route: 065
  5. SEROQUEL [Concomitant]
     Route: 065
  6. EFFEXOR [Concomitant]
     Dosage: 75 AT NOON AND IN THE EVENING
     Route: 065
  7. NOZINAN [Concomitant]
     Route: 065
  8. SINTROM [Concomitant]
     Dosage: EVENING
     Route: 065
  9. DOMINAL [Concomitant]
     Route: 065

REACTIONS (2)
  - OVERDOSE [None]
  - PULMONARY EMBOLISM [None]
